FAERS Safety Report 7340564-1 (Version None)
Quarter: 2011Q1

REPORT INFORMATION
  Report Type: 
  Country: None (occurrence: None)
  Receive Date: 20110309
  Receipt Date: 20110303
  Transmission Date: 20110831
  Serious: Yes (Other)
  Sender: FDA-Public Use
  Company Number: FR-PFIZER INC-2011046673

PATIENT
  Age: 62 Year
  Sex: Male

DRUGS (8)
  1. NEXIUM [Concomitant]
  2. AMLOR [Suspect]
     Dosage: UNK
     Dates: start: 20100901
  3. BISOPROLOL [Concomitant]
  4. NOVONORM [Concomitant]
  5. KARDEGIC [Concomitant]
  6. INSULIN [Concomitant]
  7. AMLOR [Suspect]
     Indication: HYPERTENSION
     Dosage: 5 MG, UNK
     Dates: end: 20100701
  8. SIMVASTATIN [Concomitant]

REACTIONS (10)
  - GLAUCOMA [None]
  - DECREASED APPETITE [None]
  - RHINORRHOEA [None]
  - COUGH [None]
  - ANXIETY [None]
  - SLEEP DISORDER [None]
  - VISUAL IMPAIRMENT [None]
  - VASCULAR GRAFT [None]
  - FATIGUE [None]
  - VERTIGO [None]
